FAERS Safety Report 5594423-5 (Version None)
Quarter: 2008Q1

REPORT INFORMATION
  Report Type: 
  Country: None (occurrence: None)
  Receive Date: 20080117
  Receipt Date: 20080109
  Transmission Date: 20080703
  Serious: Yes (Other)
  Sender: FDA-Public Use
  Company Number: US-JNJFOC-20080102396

PATIENT
  Sex: Male
  Weight: 92.08 kg

DRUGS (11)
  1. FENTANYL TRANSDERMAL SYSTEM [Suspect]
     Route: 062
  2. FENTANYL TRANSDERMAL SYSTEM [Suspect]
     Route: 062
  3. FENTANYL TRANSDERMAL SYSTEM [Suspect]
     Indication: PAIN
     Route: 062
  4. PLAVIX [Concomitant]
     Indication: CARDIAC DISORDER
     Route: 048
  5. ASPIRIN [Concomitant]
     Indication: CARDIAC DISORDER
     Route: 048
  6. NEURONTIN [Concomitant]
     Indication: PAIN
     Route: 048
  7. CYMBALTA [Concomitant]
     Indication: DEPRESSION
     Route: 048
  8. LISINOPRIL [Concomitant]
     Indication: BLOOD PRESSURE
     Route: 048
  9. SOMA [Concomitant]
     Indication: MUSCLE RELAXANT THERAPY
     Route: 048
  10. RESTORIL [Concomitant]
     Indication: SLEEP DISORDER
     Route: 048
  11. PRAVASTATIN [Concomitant]
     Indication: BLOOD CHOLESTEROL
     Route: 048

REACTIONS (2)
  - ROAD TRAFFIC ACCIDENT [None]
  - SOMNOLENCE [None]
